FAERS Safety Report 10018877 (Version 1)
Quarter: 2014Q1

REPORT INFORMATION
  Report Type: Spontaneous
  Country: FR (occurrence: FR)
  Receive Date: 20140318
  Receipt Date: 20140318
  Transmission Date: 20141002
  Serious: Yes (Hospitalization)
  Sender: FDA-Public Use
  Company Number: FR-SA-2014SA029005

PATIENT
  Age: 72 Year
  Sex: Male

DRUGS (10)
  1. METFORMIN [Suspect]
     Indication: PRODUCT USED FOR UNKNOWN INDICATION
     Route: 048
     Dates: start: 2007, end: 20131125
  2. LASILIX [Suspect]
     Indication: PRODUCT USED FOR UNKNOWN INDICATION
     Route: 048
     Dates: start: 20131114, end: 20131125
  3. COVERAM [Suspect]
     Indication: PRODUCT USED FOR UNKNOWN INDICATION
     Route: 048
     Dates: end: 20131125
  4. FLUDEX [Suspect]
     Indication: PRODUCT USED FOR UNKNOWN INDICATION
     Route: 048
     Dates: end: 20131125
  5. PREVISCAN [Concomitant]
  6. PREVISCAN [Concomitant]
     Dosage: 1/4 TABLET IN THE EVENING AND 1 /2 IN THE FOLLOWING EVENING ACCORDING INR
  7. PRAVASTATIN [Concomitant]
  8. TEMERIT [Concomitant]
     Dosage: 5MG/25MG
     Dates: end: 201311
  9. SELOKEN [Concomitant]
     Dates: start: 201311
  10. TRINITRINE [Concomitant]
     Dosage: 0.15MG : 1 TABLET 3 TIMES PER DAY

REACTIONS (3)
  - Renal failure acute [Recovered/Resolved]
  - Lactic acidosis [Recovered/Resolved]
  - Drug level increased [Recovered/Resolved]
